FAERS Safety Report 4897321-5 (Version None)
Quarter: 2005Q4

REPORT INFORMATION
  Report Type: 
  Country: None (occurrence: None)
  Receive Date: 20051223
  Receipt Date: 20050926
  Transmission Date: 20060501
  Serious: No
  Sender: FDA-Public Use
  Company Number: 05P-163-0312039-00

PATIENT
  Age: 52 Year
  Sex: Male
  Weight: 81.6475 kg

DRUGS (6)
  1. HUMIRA [Suspect]
     Indication: RHEUMATOID ARTHRITIS
     Dosage: 40 MG, 1 IN 2 WK, SUBCUTANEOUS
     Route: 058
     Dates: start: 20040101
  2. FEXOFENADINE HYDROCHLORIDE [Concomitant]
  3. LISINOPRIL [Concomitant]
  4. ATENOLOL [Concomitant]
  5. AMLODIPINE BESYLATE [Concomitant]
  6. VITORIN [Concomitant]

REACTIONS (1)
  - INJECTION SITE IRRITATION [None]
